FAERS Safety Report 7703324-5 (Version None)
Quarter: 2011Q3

REPORT INFORMATION
  Report Type: 
  Country: None (occurrence: None)
  Receive Date: 20110823
  Receipt Date: 20110811
  Transmission Date: 20111222
  Serious: Yes (Other)
  Sender: FDA-Public Use
  Company Number: DE-ELI_LILLY_AND_COMPANY-DE201108004028

PATIENT
  Sex: Female

DRUGS (2)
  1. LYRICA [Concomitant]
  2. CYMBALTA [Suspect]
     Indication: PAIN
     Dosage: UNK, UNKNOWN

REACTIONS (2)
  - LEUKOPENIA [None]
  - THROMBOCYTOPENIA [None]
